FAERS Safety Report 9330002 (Version 1)
Quarter: 2013Q2

REPORT INFORMATION
  Report Type: Spontaneous
  Country: US (occurrence: US)
  Receive Date: 20130604
  Receipt Date: 20130604
  Transmission Date: 20140414
  Serious: No
  Sender: FDA-Public Use
  Company Number: US-ASTRAZENECA-2013SE35380

PATIENT
  Sex: 0

DRUGS (24)
  1. PULMICORT [Suspect]
     Route: 055
  2. TAMOXIFEN [Suspect]
     Route: 065
  3. MORPHINE [Suspect]
     Route: 065
  4. METHOTREXATE [Suspect]
     Route: 065
  5. PAXIL [Suspect]
     Route: 065
  6. LEVETIRACETAM [Concomitant]
  7. ARIMIDEX [Concomitant]
  8. CITALOPRAM [Concomitant]
  9. ASPIRIN [Concomitant]
  10. SPIRIVA [Concomitant]
     Dosage: MORNING
  11. METOPROLOL TARTRATE [Concomitant]
  12. TRAZODONE [Concomitant]
     Dosage: 150 MG , PM
  13. PROVENTIL [Concomitant]
     Dosage: AS REQUIRED
  14. CELEBREX (PFIZER) [Concomitant]
     Route: 048
  15. CELEBREX (PFIZER) [Concomitant]
     Dosage: AS REQUIRED
     Route: 048
  16. XALATAN (PFIZER) [Concomitant]
  17. LISINOPRIL [Concomitant]
     Dosage: 10 MG , PM
  18. ADVAIR [Concomitant]
  19. ADVAIR [Concomitant]
     Dosage: 500/50
  20. TURMERIC EXTRACT [Concomitant]
  21. LACTAID [Concomitant]
     Dosage: 9000 FCC PRIOR TO EATING DAIRY
  22. CENTRUM SILVER [Concomitant]
  23. VITAMIN D [Concomitant]
  24. BIO TEARS [Concomitant]
     Dosage: TWICE DAILY

REACTIONS (10)
  - Laryngitis [Unknown]
  - Rash [Unknown]
  - Urticaria [Unknown]
  - Toxicity to various agents [Unknown]
  - Pain [Unknown]
  - Bone disorder [Unknown]
  - Muscle disorder [Unknown]
  - Nervous system disorder [Unknown]
  - Amnesia [Unknown]
  - Vomiting [Unknown]
